FAERS Safety Report 16368382 (Version 1)
Quarter: 2019Q2

REPORT INFORMATION
  Report Type: Spontaneous
  Country: TH (occurrence: TH)
  Receive Date: 20190529
  Receipt Date: 20190529
  Transmission Date: 20190711
  Serious: Yes (Disabling, Other)
  Sender: FDA-Public Use
  Company Number: TH-APOPHARMA USA, INC.-2019AP015248

PATIENT
  Age: 3 Year
  Sex: Female
  Weight: 13.3 kg

DRUGS (7)
  1. ALKERAN [Suspect]
     Active Substance: MELPHALAN
     Dosage: 7.5 MG, Q.M.T.
     Route: 013
     Dates: start: 201506, end: 201506
  2. ALKERAN [Suspect]
     Active Substance: MELPHALAN
     Dosage: 7.5 MG, Q.M.T.
     Route: 013
     Dates: start: 201505, end: 201505
  3. CYCLOPHOSPHAMIDE. [Concomitant]
     Active Substance: CYCLOPHOSPHAMIDE
     Indication: RETINOBLASTOMA
     Dosage: 30 MG/KG, QD
     Route: 042
     Dates: start: 20150422, end: 20150423
  4. ALKERAN [Suspect]
     Active Substance: MELPHALAN
     Indication: RETINOBLASTOMA
     Dosage: 5 MG, Q.M.T.
     Route: 013
     Dates: start: 20140915, end: 201409
  5. VINCRISTINE [Concomitant]
     Active Substance: VINCRISTINE
     Indication: RETINOBLASTOMA
     Dosage: 0.05 MG/KG, QD
     Route: 042
     Dates: start: 20150422, end: 20150422
  6. DOXORUBICIN [Concomitant]
     Active Substance: DOXORUBICIN
     Indication: RETINOBLASTOMA
     Dosage: 2 MG/KG, QD
     Route: 042
     Dates: start: 20150422, end: 20150423
  7. ALKERAN [Suspect]
     Active Substance: MELPHALAN
     Dosage: 7.5 MG, Q.M.T.
     Route: 013
     Dates: start: 201507, end: 201507

REACTIONS (1)
  - Vitreous haemorrhage [Recovered/Resolved with Sequelae]

NARRATIVE: CASE EVENT DATE: 20151103
